FAERS Safety Report 26104978 (Version 1)
Quarter: 2025Q4

REPORT INFORMATION
  Report Type: Spontaneous
  Country: US (occurrence: US)
  Receive Date: 20251130
  Receipt Date: 20251130
  Transmission Date: 20260117
  Serious: Yes (Other)
  Sender: ALKEM
  Company Number: None

PATIENT
  Age: 40 Year

DRUGS (12)
  1. MYCOPHENOLATE MOFETIL [Suspect]
     Active Substance: MYCOPHENOLATE MOFETIL
     Indication: Immunosuppressant drug therapy
     Dosage: UNK
     Route: 065
  2. MYCOPHENOLATE MOFETIL [Suspect]
     Active Substance: MYCOPHENOLATE MOFETIL
     Indication: Pancreas transplant rejection
     Dosage: UNK (RECHALLENGE DOSE)
     Route: 065
  3. TACROLIMUS [Suspect]
     Active Substance: TACROLIMUS
     Indication: Immunosuppressant drug therapy
     Dosage: UNK
     Route: 065
  4. METHYLPREDNISOLONE [Suspect]
     Active Substance: METHYLPREDNISOLONE
     Indication: Pancreas transplant rejection
     Dosage: 500 MILLIGRAM, BID (ON DAYS 1-3)
     Route: 065
  5. METHYLPREDNISOLONE [Suspect]
     Active Substance: METHYLPREDNISOLONE
     Dosage: 250 MILLIGRAM, BID (ON DAY 4)
     Route: 065
  6. METHYLPREDNISOLONE [Suspect]
     Active Substance: METHYLPREDNISOLONE
     Dosage: 125 MILLIGRAM, BID (ON DAY 5)
     Route: 065
  7. BASILIXIMAB [Suspect]
     Active Substance: BASILIXIMAB
     Indication: Immunosuppressant drug therapy
     Dosage: UNK
     Route: 065
  8. PREDNISONE [Suspect]
     Active Substance: PREDNISONE
     Indication: Immunosuppressant drug therapy
     Dosage: 5 MILLIGRAM, QD
     Route: 065
  9. PREDNISONE [Suspect]
     Active Substance: PREDNISONE
     Dosage: 10 MILLIGRAM, QD (DOSE INCREASED)
     Route: 065
  10. ANTI-THYMOCYTE GLOBULIN (RABBIT) NOS [Suspect]
     Active Substance: LAPINE T-LYMPHOCYTE IMMUNE GLOBULIN
     Indication: Transplant rejection
     Dosage: 7.5 MILLIGRAM/KILOGRAM (OVER 3 DOSES)
     Route: 065
  11. ANTI-THYMOCYTE GLOBULIN (RABBIT) NOS [Suspect]
     Active Substance: LAPINE T-LYMPHOCYTE IMMUNE GLOBULIN
     Dosage: UNK
     Route: 065
  12. PENTAMIDINE [Concomitant]
     Active Substance: PENTAMIDINE
     Indication: Antiviral prophylaxis
     Dosage: UNK (EVERY 1 MONTH)

REACTIONS (6)
  - Colitis [Unknown]
  - Pancytopenia [Unknown]
  - Cytomegalovirus infection [Not Recovered/Not Resolved]
  - Transplant rejection [Recovering/Resolving]
  - Pancreas transplant rejection [Recovering/Resolving]
  - Therapy partial responder [Unknown]
